FAERS Safety Report 10018816 (Version 1)
Quarter: 2014Q1

REPORT INFORMATION
  Report Type: Spontaneous
  Country: US (occurrence: US)
  Receive Date: 20140318
  Receipt Date: 20140318
  Transmission Date: 20141002
  Serious: Yes (Other)
  Sender: FDA-Public Use
  Company Number: US-GLAXOSMITHKLINE-A1065221A

PATIENT
  Age: 54 Year
  Sex: Female

DRUGS (15)
  1. BENLYSTA [Suspect]
     Indication: SYSTEMIC LUPUS ERYTHEMATOSUS
     Route: 042
     Dates: start: 2011, end: 201305
  2. METHOTREXATE [Concomitant]
  3. PREDNISONE [Concomitant]
  4. LEFLUNOMIDE [Concomitant]
  5. ZANTAC [Concomitant]
  6. ZOFRAN [Concomitant]
  7. TORADOL [Concomitant]
  8. LISINOPRIL [Concomitant]
  9. ROBAXIN [Concomitant]
  10. HYDROCODONE [Concomitant]
  11. BYSTOLIC [Concomitant]
  12. NEXIUM [Concomitant]
  13. NASONEX [Concomitant]
  14. MUCINEX [Concomitant]
  15. ATORVASTATIN [Concomitant]

REACTIONS (5)
  - Rheumatoid arthritis [Not Recovered/Not Resolved]
  - Joint swelling [Not Recovered/Not Resolved]
  - Pain in extremity [Not Recovered/Not Resolved]
  - Arthropathy [Not Recovered/Not Resolved]
  - Pain in extremity [Not Recovered/Not Resolved]
